FAERS Safety Report 24848003 (Version 1)
Quarter: 2025Q1

REPORT INFORMATION
  Report Type: Spontaneous
  Country: US (occurrence: US)
  Receive Date: 20250116
  Receipt Date: 20250116
  Transmission Date: 20250408
  Serious: No
  Sender: BRISTOL-MYERS SQUIBB COMPANY
  Company Number: US-BRISTOL-MYERS SQUIBB COMPANY-2025-003007

PATIENT
  Age: 71 Year
  Sex: Male
  Weight: 69.85 kg

DRUGS (7)
  1. ELIQUIS [Suspect]
     Active Substance: APIXABAN
     Indication: Jugular vein thrombosis
     Route: 048
     Dates: start: 20250106
  2. ELIQUIS [Suspect]
     Active Substance: APIXABAN
     Indication: Subclavian vein thrombosis
  3. ELIQUIS [Suspect]
     Active Substance: APIXABAN
     Indication: Axillary vein thrombosis
  4. ELIQUIS [Suspect]
     Active Substance: APIXABAN
     Indication: Superficial vein thrombosis
  5. PANTOPRAZOLE [Concomitant]
     Active Substance: PANTOPRAZOLE
     Indication: Product used for unknown indication
  6. TETRACYCLINE [Concomitant]
     Active Substance: TETRACYCLINE
     Indication: Helicobacter infection
     Dates: end: 20250107
  7. METRONIDAZOLE [Concomitant]
     Active Substance: METRONIDAZOLE
     Indication: Helicobacter infection
     Dates: end: 20250107

REACTIONS (1)
  - Off label use [Unknown]
